FAERS Safety Report 18409322 (Version 1)
Quarter: 2020Q4

REPORT INFORMATION
  Report Type: Spontaneous
  Country: US (occurrence: US)
  Receive Date: 20201021
  Receipt Date: 20201021
  Transmission Date: 20210114
  Serious: No
  Sender: FDA-Public Use
  Company Number: US-BAYER-2020-223978

PATIENT
  Sex: Female

DRUGS (18)
  1. AVELOX [Suspect]
     Active Substance: MOXIFLOXACIN HYDROCHLORIDE
  2. ALPHAGAN P [Suspect]
     Active Substance: BRIMONIDINE TARTRATE
  3. PREMARIN [Suspect]
     Active Substance: ESTROGENS, CONJUGATED
  4. SUPRAX [Suspect]
     Active Substance: CEFIXIME
  5. LOTEMAX [Suspect]
     Active Substance: LOTEPREDNOL ETABONATE
  6. VICODIN [Suspect]
     Active Substance: ACETAMINOPHEN\HYDROCODONE BITARTRATE
  7. LEVAQUIN [Suspect]
     Active Substance: LEVOFLOXACIN
  8. MACROBID [Suspect]
     Active Substance: NITROFURANTOIN\NITROFURANTOIN MONOHYDRATE
  9. LUMIGAN [Suspect]
     Active Substance: BIMATOPROST
  10. VANCOMYCIN [Suspect]
     Active Substance: VANCOMYCIN
  11. ALREX [ALPRAZOLAM] [Suspect]
     Active Substance: ALPRAZOLAM
  12. FLAGYL [Suspect]
     Active Substance: METRONIDAZOLE\METRONIDAZOLE HYDROCHLORIDE
  13. TRUSOPT [Suspect]
     Active Substance: DORZOLAMIDE HYDROCHLORIDE
  14. DORZOLAMIDE [Suspect]
     Active Substance: DORZOLAMIDE
  15. VIOXX [Suspect]
     Active Substance: ROFECOXIB
     Dosage: UNK
  16. BRIMONIDINE [Suspect]
     Active Substance: BRIMONIDINE TARTRATE
  17. CELEBREX [Suspect]
     Active Substance: CELECOXIB
  18. TRAVATAN [Suspect]
     Active Substance: TRAVOPROST

REACTIONS (1)
  - Hypersensitivity [None]
